FAERS Safety Report 6751498-5 (Version None)
Quarter: 2010Q2

REPORT INFORMATION
  Report Type: 
  Country: None (occurrence: None)
  Receive Date: 20100602
  Receipt Date: 20100524
  Transmission Date: 20101027
  Serious: Yes (Hospitalization, Other)
  Sender: FDA-Public Use
  Company Number: IT-ROCHE-704632

PATIENT
  Age: 66 Year
  Sex: Female

DRUGS (8)
  1. CLONAZEPAM [Suspect]
     Indication: DRUG USE FOR UNKNOWN INDICATION
     Dosage: OVERDOSE - UNSPECIFIED AMOUNT
     Route: 048
  2. CLONAZEPAM [Suspect]
     Dosage: FREQUENCY: WHEN NEEDED.
     Route: 048
  3. DULOXETINE HYDROCHLORIDE [Suspect]
     Dosage: OVERDOSE
     Route: 048
  4. TRAZODONE HCL [Suspect]
     Dosage: OVERDOSE
     Route: 048
  5. VENLAFAXINE [Suspect]
     Dosage: OVERDOSE - UNSPECIFIED AMOUNT
     Route: 048
  6. VENLAFAXINE [Suspect]
     Route: 048
  7. SERTRALINE HCL [Suspect]
     Dosage: OVERDOSE - UNSPECIFIED AMOUNT
     Route: 048
  8. SERTRALINE HCL [Suspect]
     Route: 048

REACTIONS (8)
  - AZOTAEMIA [None]
  - ELECTROCARDIOGRAM QT PROLONGED [None]
  - HYPOTENSION [None]
  - LEUKOCYTOSIS [None]
  - MENTAL STATUS CHANGES [None]
  - OVERDOSE [None]
  - SINUS BRADYCARDIA [None]
  - SUICIDE ATTEMPT [None]
